FAERS Safety Report 9324355 (Version 1)
Quarter: 2013Q2

REPORT INFORMATION
  Report Type: Report from Study
  Country: DE (occurrence: DE)
  Receive Date: 20130603
  Receipt Date: 20130603
  Transmission Date: 20140414
  Serious: Yes (Hospitalization)
  Sender: FDA-Public Use
  Company Number: DE-BAXTER-2013BAX020009

PATIENT
  Age: 32 Year
  Sex: Female
  Weight: 56 kg

DRUGS (8)
  1. ENDOXAN 1G [Suspect]
     Indication: BREAST CANCER
     Route: 042
     Dates: start: 20130430
  2. TRASTUZUMAB [Suspect]
     Indication: BREAST CANCER
     Route: 042
     Dates: start: 20130129
  3. TRASTUZUMAB [Suspect]
     Route: 042
     Dates: start: 20130416
  4. PERTUZUMAB [Suspect]
     Indication: BREAST CANCER
     Route: 042
     Dates: start: 20130129
  5. PERTUZUMAB [Suspect]
     Route: 042
     Dates: start: 20130416
  6. EPIRUBICIN HYDROCHLORIDE [Suspect]
     Indication: BREAST CANCER
     Route: 042
     Dates: start: 20130430
  7. PACLITAXEL [Suspect]
     Indication: BREAST CANCER
     Route: 042
     Dates: start: 20130129
  8. PACLITAXEL [Suspect]
     Route: 042
     Dates: start: 20130416

REACTIONS (1)
  - Pyrexia [Not Recovered/Not Resolved]
